FAERS Safety Report 5218439-3 (Version None)
Quarter: 2007Q1

REPORT INFORMATION
  Report Type: 
  Country: None (occurrence: None)
  Receive Date: 20070124
  Receipt Date: 20070112
  Transmission Date: 20070707
  Serious: Yes (Other)
  Sender: FDA-Public Use
  Company Number: IE-PFIZER INC-2007005466

PATIENT
  Age: 28 Year
  Sex: Female

DRUGS (4)
  1. CETIRIZINE HCL [Suspect]
     Route: 048
  2. PARACETAMOL [Suspect]
     Route: 048
  3. RABEPRAZOLE SODIUM [Suspect]
     Route: 048
  4. ETHANOL [Suspect]

REACTIONS (1)
  - INTENTIONAL OVERDOSE [None]
